FAERS Safety Report 9942301 (Version 1)
Quarter: 2014Q1

REPORT INFORMATION
  Report Type: Spontaneous
  Country: PK (occurrence: PK)
  Receive Date: 20140303
  Receipt Date: 20140303
  Transmission Date: 20141002
  Serious: Yes (Death)
  Sender: FDA-Public Use
  Company Number: PHHY2014PK025368

PATIENT
  Sex: 0

DRUGS (1)
  1. IMATINIB [Suspect]
     Route: 064

REACTIONS (3)
  - Stillbirth [Fatal]
  - Congenital anomaly [Fatal]
  - Exposure via father [Unknown]
